FAERS Safety Report 24444982 (Version 2)
Quarter: 2024Q4

REPORT INFORMATION
  Report Type: Report from Study
  Country: US (occurrence: US)
  Receive Date: 20241016
  Receipt Date: 20241017
  Transmission Date: 20250115
  Serious: No
  Sender: ROCHE
  Company Number: US-ROCHE-3027880

PATIENT
  Age: 56 Year
  Sex: Female

DRUGS (2)
  1. RITUXAN [Suspect]
     Active Substance: RITUXIMAB
     Indication: Sarcoidosis
     Dosage: ONCE EVERY 2 WEEKS, REPEAT AFTER 6 MONTHS?DATE OF SERVICE: 25/FEB/2022, 25/AUG/2022 (VIAL, 1000MG),
     Route: 042
     Dates: start: 20220211
  2. RITUXAN [Suspect]
     Active Substance: RITUXIMAB
     Indication: Factor VIII deficiency

REACTIONS (2)
  - Off label use [Unknown]
  - No adverse event [Unknown]
